FAERS Safety Report 17978403 (Version 1)
Quarter: 2020Q3

REPORT INFORMATION
  Report Type: Spontaneous
  Country: US (occurrence: US)
  Receive Date: 20200703
  Receipt Date: 20200703
  Transmission Date: 20201103
  Serious: No
  Sender: FDA-Public Use
  Company Number: US-VERTEX PHARMACEUTICALS-2020-013964

PATIENT
  Age: 58 Year
  Sex: Female

DRUGS (1)
  1. TRIKAFTA [Suspect]
     Active Substance: ELEXACAFTOR\IVACAFTOR\TEZACAFTOR
     Indication: CYSTIC FIBROSIS
     Dosage: 2 TABLS (100 MG ELEXA/ 50 MG TEZA/ 75 MG IVA) IN AM AND 1 (150 MG IVA) IN PM
     Route: 048
     Dates: start: 20200327, end: 20200625

REACTIONS (1)
  - Swelling [Unknown]

NARRATIVE: CASE EVENT DATE: 202006
